FAERS Safety Report 24052603 (Version 1)
Quarter: 2024Q3

REPORT INFORMATION
  Report Type: Report from Study
  Country: US (occurrence: US)
  Receive Date: 20240705
  Receipt Date: 20240705
  Transmission Date: 20241017
  Serious: Yes (Other)
  Sender: ABBVIE
  Company Number: US-ABBVIE-5822061

PATIENT
  Sex: Female

DRUGS (1)
  1. HUMIRA [Suspect]
     Active Substance: ADALIMUMAB
     Indication: Rheumatoid arthritis
     Route: 058
     Dates: start: 20210613

REACTIONS (11)
  - Oesophageal obstruction [Unknown]
  - Stomatitis [Unknown]
  - Injection site pain [Unknown]
  - Pain [Unknown]
  - Lichen planus [Unknown]
  - Eczema [Unknown]
  - Neck injury [Unknown]
  - Chest injury [Unknown]
  - Arthralgia [Unknown]
  - Arthritis [Unknown]
  - Road traffic accident [Unknown]
